FAERS Safety Report 7782051-2 (Version None)
Quarter: 2011Q3

REPORT INFORMATION
  Report Type: 
  Country: None (occurrence: None)
  Receive Date: 20110927
  Receipt Date: 20110922
  Transmission Date: 20111222
  Serious: Yes (Other)
  Sender: FDA-Public Use
  Company Number: US-BAYER-2011-090147

PATIENT
  Age: 26 Year
  Sex: Female

DRUGS (2)
  1. NEXIUM [Concomitant]
  2. AVELOX [Suspect]
     Indication: PHARYNGITIS STREPTOCOCCAL
     Dosage: UNK
     Route: 048
     Dates: start: 20110917, end: 20110917

REACTIONS (2)
  - THROAT TIGHTNESS [None]
  - URTICARIA [None]
